FAERS Safety Report 18910764 (Version 3)
Quarter: 2021Q3

REPORT INFORMATION
  Report Type: Report from Study
  Country: US (occurrence: US)
  Receive Date: 20210218
  Receipt Date: 20210924
  Transmission Date: 20211014
  Serious: Yes (Other)
  Sender: FDA-Public Use
  Company Number: US-SHIRE-US202012031

PATIENT
  Sex: Female

DRUGS (2)
  1. HUMAN NORMAL IMMUNOGLOBULIN; LIQUID [Suspect]
     Active Substance: HUMAN IMMUNOGLOBULIN G
     Indication: PRIMARY IMMUNODEFICIENCY SYNDROME
     Dosage: UNK
     Route: 058
  2. CUVITRU [Suspect]
     Active Substance: HUMAN IMMUNOGLOBULIN G
     Indication: PRIMARY IMMUNODEFICIENCY SYNDROME
     Dosage: UNK
     Route: 065

REACTIONS (10)
  - Product dose omission issue [Unknown]
  - Poor venous access [Unknown]
  - Myocardial infarction [Unknown]
  - Illness [Unknown]
  - Cardiac disorder [Unknown]
  - Pneumonia [Unknown]
  - Infusion site pain [Unknown]
  - Lung disorder [Unknown]
  - Chest pain [Unknown]
  - Ear disorder [Unknown]

NARRATIVE: CASE EVENT DATE: 2014
